FAERS Safety Report 4734759-0 (Version None)
Quarter: 2005Q3

REPORT INFORMATION
  Report Type: 
  Country: None (occurrence: None)
  Receive Date: 20050804
  Receipt Date: 20050630
  Transmission Date: 20060218
  Serious: Yes (Hospitalization)
  Sender: FDA-Public Use
  Company Number: JP-GLAXOSMITHKLINE-B0386578A

PATIENT
  Age: 88 Year
  Sex: Female
  Weight: 37 kg

DRUGS (3)
  1. VALTREX [Suspect]
     Indication: HERPES ZOSTER
     Dosage: 1000MG THREE TIMES PER DAY
     Route: 048
     Dates: start: 20050530, end: 20050531
  2. OSTELUC [Concomitant]
     Indication: OSTEOARTHRITIS
     Route: 048
     Dates: start: 20050523
  3. SELBEX [Concomitant]
     Indication: OSTEOARTHRITIS
     Route: 048
     Dates: start: 20050523

REACTIONS (6)
  - ASTHENIA [None]
  - DEPRESSED LEVEL OF CONSCIOUSNESS [None]
  - NAUSEA [None]
  - OVERDOSE [None]
  - PYREXIA [None]
  - RENAL FAILURE ACUTE [None]
